FAERS Safety Report 8903557 (Version 1)
Quarter: 2012Q4

REPORT INFORMATION
  Report Type: 
  Country: FR (occurrence: FR)
  Receive Date: 20121113
  Receipt Date: 20121113
  Transmission Date: 20130627
  Serious: Yes (Other)
  Sender: FDA-Public Use
  Company Number: FR-WATSON-2012-19174

PATIENT
  Age: 11 Year
  Sex: Male

DRUGS (2)
  1. TACROLIMUS (UNKNOWN) [Suspect]
     Indication: NEPHROTIC SYNDROME
     Dosage: UNK, unknown
     Route: 065
  2. JOSAMYCIN [Suspect]
     Indication: OTITIS MEDIA ACUTE
     Dosage: UNK, unknown
     Route: 065

REACTIONS (6)
  - Drug interaction [Recovered/Resolved]
  - Posterior reversible encephalopathy syndrome [Recovered/Resolved]
  - Status epilepticus [Recovered/Resolved]
  - Overdose [Recovered/Resolved]
  - Renal failure acute [Recovered/Resolved]
  - Acute pulmonary oedema [Recovered/Resolved]
